FAERS Safety Report 25192903 (Version 5)
Quarter: 2025Q2

REPORT INFORMATION
  Report Type: Spontaneous
  Country: RU (occurrence: RU)
  Receive Date: 20250414
  Receipt Date: 20250626
  Transmission Date: 20250716
  Serious: Yes (Hospitalization, Other)
  Sender: SANOFI AVENTIS
  Company Number: RU-SA-2025SA101007

PATIENT
  Age: 1 Day
  Sex: Male
  Weight: 1.33 kg

DRUGS (1)
  1. LEMTRADA [Suspect]
     Active Substance: ALEMTUZUMAB
     Indication: Multiple sclerosis
     Route: 064

REACTIONS (9)
  - Gastrointestinal disorder [Recovered/Resolved]
  - Low birth weight baby [Not Recovered/Not Resolved]
  - Visual impairment [Unknown]
  - Bronchopulmonary dysplasia [Unknown]
  - Neonatal cholestasis [Unknown]
  - Perinatal brain damage [Unknown]
  - Stoma closure [Recovering/Resolving]
  - Premature baby [Recovered/Resolved]
  - Foetal exposure during pregnancy [Unknown]

NARRATIVE: CASE EVENT DATE: 20250101
